FAERS Safety Report 14490471 (Version 1)
Quarter: 2018Q1

REPORT INFORMATION
  Report Type: Spontaneous
  Country: US (occurrence: US)
  Receive Date: 20180206
  Receipt Date: 20180206
  Transmission Date: 20180509
  Serious: No
  Sender: FDA-Public Use
  Company Number: US-BEH-2018087527

PATIENT
  Age: 26 Year
  Sex: Female
  Weight: 88.44 kg

DRUGS (24)
  1. ACETAMINOPHEN. [Concomitant]
     Active Substance: ACETAMINOPHEN
     Route: 065
  2. LIDOCAINE. [Concomitant]
     Active Substance: LIDOCAINE
     Route: 065
  3. AUGMENTIN [Concomitant]
     Active Substance: AMOXICILLIN\CLAVULANATE POTASSIUM
     Route: 065
  4. PREDNISONE. [Concomitant]
     Active Substance: PREDNISONE
     Route: 065
  5. LORAZEPAM. [Concomitant]
     Active Substance: LORAZEPAM
     Route: 065
  6. HIZENTRA [Suspect]
     Active Substance: HUMAN IMMUNOGLOBULIN G
     Dosage: 10 G, QW
     Route: 058
     Dates: start: 20140902
  7. KEFLEX [Concomitant]
     Active Substance: CEPHALEXIN
     Route: 065
  8. LYRICA [Concomitant]
     Active Substance: PREGABALIN
     Route: 065
  9. FLUOXETINE [Concomitant]
     Active Substance: FLUOXETINE HYDROCHLORIDE
     Route: 065
  10. DIPHENHYDRAMINE. [Concomitant]
     Active Substance: DIPHENHYDRAMINE
     Route: 065
  11. CALCITROL                          /00508501/ [Concomitant]
     Active Substance: CALCIUM CARBONATE\ERGOCALCIFEROL\RETINOL
     Route: 065
  12. GLYBURIDE. [Concomitant]
     Active Substance: GLYBURIDE
     Route: 065
  13. IRON [Concomitant]
     Active Substance: IRON
     Route: 065
  14. VITAMIN D                          /00107901/ [Concomitant]
     Active Substance: ERGOCALCIFEROL
     Route: 065
  15. HYDROCODONE BITARTRATE AND ACETAMINOPHEN [Concomitant]
     Active Substance: ACETAMINOPHEN\HYDROCODONE BITARTRATE
     Route: 065
  16. SODIUM BICARBONATE. [Concomitant]
     Active Substance: SODIUM BICARBONATE
     Route: 065
  17. HIZENTRA [Suspect]
     Active Substance: HUMAN IMMUNOGLOBULIN G
     Indication: IMMUNODEFICIENCY COMMON VARIABLE
     Dosage: UNK
     Route: 058
  18. TUMS                               /00193601/ [Concomitant]
     Active Substance: CALCIUM CARBONATE\MAGNESIUM CARBONATE\MAGNESIUM TRISILICATE
     Route: 065
  19. LANSOPRAZOLE. [Concomitant]
     Active Substance: LANSOPRAZOLE
     Route: 065
  20. VITAMIN D3 [Concomitant]
     Active Substance: CHOLECALCIFEROL
     Route: 065
  21. EPIPEN [Concomitant]
     Active Substance: EPINEPHRINE
     Route: 065
  22. ABILIFY [Concomitant]
     Active Substance: ARIPIPRAZOLE
     Route: 065
  23. METOPROLOL. [Concomitant]
     Active Substance: METOPROLOL
     Route: 065
  24. CALCIUM CITRATE [Concomitant]
     Active Substance: CALCIUM CITRATE
     Route: 065

REACTIONS (2)
  - Pyrexia [Unknown]
  - Myalgia [Unknown]

NARRATIVE: CASE EVENT DATE: 201801
